FAERS Safety Report 9563486 (Version 1)
Quarter: 2013Q1

REPORT INFORMATION
  Report Type: Spontaneous
  Country: US (occurrence: None)
  Receive Date: 20121218
  Receipt Date: 20121218
  Transmission Date: 20140127
  Serious: Yes (Other)
  Sender: FDA-Public Use
  Company Number: PHEH2012US007149

PATIENT
  Sex: 0

DRUGS (1)
  1. ZOMETA (ZOLEDRONATE) UNKNOWN [Suspect]
     Dosage: UNK,UNK,UNK
     Dates: start: 20120320

REACTIONS (4)
  - Thrombocytopenia [None]
  - Nausea [None]
  - Vomiting [None]
  - Influenza like illness [None]
